FAERS Safety Report 19486419 (Version 2)
Quarter: 2022Q4

REPORT INFORMATION
  Report Type: Spontaneous
  Country: US (occurrence: US)
  Receive Date: 20210702
  Receipt Date: 20221118
  Transmission Date: 20230113
  Serious: Yes (Other)
  Sender: FDA-Public Use
  Company Number: US-JNJFOC-20210655214

PATIENT
  Sex: Female

DRUGS (1)
  1. RYBREVANT [Suspect]
     Active Substance: AMIVANTAMAB-VMJW
     Indication: Product used for unknown indication
     Route: 065
     Dates: start: 20210623, end: 20210623

REACTIONS (4)
  - Oxygen saturation decreased [Recovering/Resolving]
  - Chest pain [Recovering/Resolving]
  - Cough [Recovering/Resolving]
  - Hot flush [Recovering/Resolving]

NARRATIVE: CASE EVENT DATE: 20210623
